FAERS Safety Report 5749878-X (Version None)
Quarter: 2008Q2

REPORT INFORMATION
  Report Type: 
  Country: None (occurrence: None)
  Receive Date: 20080527
  Receipt Date: 20080515
  Transmission Date: 20081010
  Serious: Yes (Other)
  Sender: FDA-Public Use
  Company Number: CN-ROCHE-565106

PATIENT
  Age: 67 Year
  Sex: Male
  Weight: 51 kg

DRUGS (1)
  1. XELODA [Suspect]
     Route: 048
     Dates: start: 20080312

REACTIONS (6)
  - BONE PAIN [None]
  - CACHEXIA [None]
  - CARBOHYDRATE ANTIGEN 19-9 INCREASED [None]
  - CARCINOEMBRYONIC ANTIGEN INCREASED [None]
  - THERAPEUTIC RESPONSE DECREASED [None]
  - TUMOUR MARKER INCREASED [None]
